FAERS Safety Report 10207496 (Version 3)
Quarter: 2014Q2

REPORT INFORMATION
  Report Type: Spontaneous
  Country: ES (occurrence: ES)
  Receive Date: 20140530
  Receipt Date: 20140612
  Transmission Date: 20141212
  Serious: Yes (Other)
  Sender: FDA-Public Use
  Company Number: ES-009507513-1405ESP013005

PATIENT
  Age: 5 Year
  Sex: Male
  Weight: 21 kg

DRUGS (3)
  1. SINGULAIR 4 MG GRANULADO [Suspect]
     Indication: EAR INFECTION
     Dosage: 1 PATCH EVERY 24 HOURS, DURING 28 DAYS
     Route: 048
     Dates: start: 20140425, end: 20140507
  2. KOFRON [Concomitant]
     Indication: EAR INFECTION
     Dosage: 3 ML 2 TIMES A DAY; STRENGHT: 50MG/ML
     Route: 065
     Dates: start: 20140425, end: 20140505
  3. AVAMYS [Concomitant]
     Indication: EAR INFECTION
     Dosage: 1 SPRAYING BY NOSTRIL 1 TIME A DAY
     Route: 065

REACTIONS (3)
  - Self-injurious ideation [Recovered/Resolved]
  - Intentional self-injury [Recovered/Resolved]
  - Irritability [Recovered/Resolved]
